FAERS Safety Report 16090535 (Version 1)
Quarter: 2019Q1

REPORT INFORMATION
  Report Type: Spontaneous
  Country: JP (occurrence: JP)
  Receive Date: 20190319
  Receipt Date: 20190319
  Transmission Date: 20190418
  Serious: Yes (Other)
  Sender: FDA-Public Use
  Company Number: JP-DSJP-DSJ-2019-109252

PATIENT

DRUGS (4)
  1. PREDNISOLONE. [Concomitant]
     Active Substance: PREDNISOLONE
     Indication: GLOMERULONEPHRITIS MEMBRANOUS
     Dosage: 7.5MG/DAY
     Route: 065
  2. TIOTROPIUM                         /01585202/ [Concomitant]
     Indication: ASTHMA
     Dosage: 2.5G/DAY
  3. BAYASPIRIN [Concomitant]
     Active Substance: ASPIRIN
     Indication: ANTIPLATELET THERAPY
     Dosage: 100MG/DAY
     Route: 065
  4. LIXIANA TABLETS [Suspect]
     Active Substance: EDOXABAN TOSYLATE
     Indication: ANTIPLATELET THERAPY
     Dosage: 30MG/DAY
     Route: 065

REACTIONS (1)
  - Vocal cord neoplasm [Recovered/Resolved]
